FAERS Safety Report 7645094-5 (Version None)
Quarter: 2011Q3

REPORT INFORMATION
  Report Type: 
  Country: None (occurrence: None)
  Receive Date: 20110729
  Receipt Date: 20110718
  Transmission Date: 20111222
  Serious: No
  Sender: FDA-Public Use
  Company Number: PHHY2011US14762

PATIENT
  Sex: Female
  Weight: 65 kg

DRUGS (4)
  1. SIMVASTATIN [Concomitant]
     Route: 048
  2. TASIGNA [Suspect]
     Indication: CHRONIC MYELOID LEUKAEMIA
     Dosage: 400 MG, BID
     Route: 048
     Dates: start: 20090901, end: 20110201
  3. LEXAPRO [Concomitant]
     Dosage: 20 MG, UNK
     Route: 048
  4. MULTI-VITAMINS [Concomitant]
     Dosage: 1 DF, UNK

REACTIONS (2)
  - NAUSEA [None]
  - DIARRHOEA [None]
